FAERS Safety Report 24811356 (Version 3)
Quarter: 2025Q1

REPORT INFORMATION
  Report Type: Report from Study
  Country: CN (occurrence: CN)
  Receive Date: 20250106
  Receipt Date: 20250311
  Transmission Date: 20250409
  Serious: Yes (Hospitalization, Other)
  Sender: GILEAD
  Company Number: CN-GILEAD-2024-0697336

PATIENT
  Age: 56 Year
  Sex: Female

DRUGS (10)
  1. SACITUZUMAB GOVITECAN-HZIY [Suspect]
     Active Substance: SACITUZUMAB GOVITECAN-HZIY
     Indication: Breast cancer
     Route: 041
     Dates: start: 20240524
  2. SACITUZUMAB GOVITECAN-HZIY [Suspect]
     Active Substance: SACITUZUMAB GOVITECAN-HZIY
     Route: 041
     Dates: start: 20240709, end: 20241109
  3. SACITUZUMAB GOVITECAN-HZIY [Suspect]
     Active Substance: SACITUZUMAB GOVITECAN-HZIY
     Route: 041
     Dates: start: 20241216
  4. SACITUZUMAB GOVITECAN-HZIY [Suspect]
     Active Substance: SACITUZUMAB GOVITECAN-HZIY
     Route: 041
     Dates: start: 20250107
  5. SACITUZUMAB GOVITECAN-HZIY [Suspect]
     Active Substance: SACITUZUMAB GOVITECAN-HZIY
     Route: 041
     Dates: start: 20250114
  6. CATEQUENTINIB DIHYDROCHLORIDE [Concomitant]
     Active Substance: CATEQUENTINIB DIHYDROCHLORIDE
     Indication: Breast cancer
     Dates: start: 20240709, end: 20241109
  7. CATEQUENTINIB DIHYDROCHLORIDE [Concomitant]
     Active Substance: CATEQUENTINIB DIHYDROCHLORIDE
     Dates: start: 20241207
  8. CATEQUENTINIB DIHYDROCHLORIDE [Concomitant]
     Active Substance: CATEQUENTINIB DIHYDROCHLORIDE
     Dates: start: 20241216
  9. CATEQUENTINIB DIHYDROCHLORIDE [Concomitant]
     Active Substance: CATEQUENTINIB DIHYDROCHLORIDE
     Route: 065
     Dates: start: 20250107
  10. CATEQUENTINIB DIHYDROCHLORIDE [Concomitant]
     Active Substance: CATEQUENTINIB DIHYDROCHLORIDE
     Route: 065
     Dates: start: 20250114

REACTIONS (5)
  - Myelosuppression [Unknown]
  - Nasopharyngitis [Unknown]
  - Disease progression [Unknown]
  - Asthenia [Recovered/Resolved]
  - Vomiting [Recovered/Resolved]

NARRATIVE: CASE EVENT DATE: 20250106
